FAERS Safety Report 9159644 (Version 3)
Quarter: 2013Q2

REPORT INFORMATION
  Report Type: Spontaneous
  Country: US (occurrence: US)
  Receive Date: 20130313
  Receipt Date: 20130423
  Transmission Date: 20140414
  Serious: No
  Sender: FDA-Public Use
  Company Number: US-PFIZER INC-2013080547

PATIENT
  Age: 51 Year
  Sex: Female
  Weight: 73.47 kg

DRUGS (3)
  1. SUTENT [Suspect]
     Indication: RENAL CANCER
     Dosage: 50 MG, DAILY TWO WEEKS ON AND 1 WEEK OFF
     Route: 048
     Dates: start: 2013
  2. CRESTOR [Concomitant]
     Indication: BLOOD CHOLESTEROL INCREASED
     Dosage: 10 MG, 1X/DAY
  3. LORTAB [Concomitant]
     Dosage: UNK

REACTIONS (11)
  - Glossitis [Unknown]
  - Dysgeusia [Unknown]
  - Constipation [Unknown]
  - Nausea [Unknown]
  - Vomiting [Unknown]
  - Headache [Unknown]
  - Thyroid function test abnormal [Unknown]
  - Nasal discomfort [Unknown]
  - Epistaxis [Unknown]
  - Oral mucosal blistering [Not Recovered/Not Resolved]
  - Blister [Not Recovered/Not Resolved]
